FAERS Safety Report 7442020-9 (Version None)
Quarter: 2011Q2

REPORT INFORMATION
  Report Type: 
  Country: None (occurrence: None)
  Receive Date: 20110428
  Receipt Date: 20101214
  Transmission Date: 20111010
  Serious: Yes (Hospitalization)
  Sender: FDA-Public Use
  Company Number: US-BAYER-200939684NA

PATIENT
  Age: 31 Year
  Sex: Female
  Weight: 86.168 kg

DRUGS (8)
  1. YASMIN [Suspect]
     Dosage: UNK
     Dates: start: 20070401, end: 20070701
  2. YAZ [Suspect]
     Dosage: UNK
     Dates: start: 20090101
  3. YASMIN [Suspect]
     Indication: CONTRACEPTION
     Dosage: UNK
     Dates: start: 20060601, end: 20070801
  4. THYROID TAB [Concomitant]
     Indication: HYPOTHYROIDISM
     Dosage: 60 MG, QD
     Dates: start: 20051101
  5. METFORMIN [Concomitant]
     Indication: GLUCOSE TOLERANCE IMPAIRED
     Dosage: UNK
     Dates: start: 20051101
  6. YAZ [Suspect]
     Dosage: UNK
     Dates: start: 20071001, end: 20071201
  7. YAZ [Suspect]
     Indication: CONTRACEPTION
     Dosage: UNK
     Dates: start: 20071001, end: 20090201
  8. YAZ [Suspect]
     Dosage: UNK
     Dates: start: 20080101, end: 20081201

REACTIONS (10)
  - GASTROOESOPHAGEAL REFLUX DISEASE [None]
  - VOMITING [None]
  - CHEST PAIN [None]
  - PROCEDURAL PAIN [None]
  - GALLBLADDER DISORDER [None]
  - EMOTIONAL DISTRESS [None]
  - CHOLELITHIASIS [None]
  - NAUSEA [None]
  - CHOLECYSTITIS CHRONIC [None]
  - QUALITY OF LIFE DECREASED [None]
